FAERS Safety Report 24254584 (Version 2)
Quarter: 2024Q3

REPORT INFORMATION
  Report Type: Spontaneous
  Country: US (occurrence: US)
  Receive Date: 20240827
  Receipt Date: 20240904
  Transmission Date: 20241016
  Serious: No
  Sender: DR REDDYS
  Company Number: US-DRL-USA-SPO/USA/24/0012186

PATIENT
  Age: 26 Year
  Sex: Female

DRUGS (1)
  1. HALOETTE [Suspect]
     Active Substance: ETHINYL ESTRADIOL\ETONOGESTREL
     Indication: Contraception
     Dosage: 0.015MG/0.12MG
     Route: 067
     Dates: start: 20240817, end: 20240820

REACTIONS (2)
  - Device breakage [Unknown]
  - Poor quality device used [Unknown]
